FAERS Safety Report 13777884 (Version 1)
Quarter: 2017Q3

REPORT INFORMATION
  Report Type: Spontaneous
  Country: US (occurrence: US)
  Receive Date: 20170721
  Receipt Date: 20170721
  Transmission Date: 20171127
  Serious: No
  Sender: FDA-Public Use
  Company Number: US-CIPLA LTD.-2017US05881

PATIENT

DRUGS (2)
  1. WARFARIN SODIUM. [Suspect]
     Active Substance: WARFARIN SODIUM
     Indication: ANTICOAGULANT THERAPY
     Dosage: 8 MG, FOR 1 DAYS AND 6 MG OTHER DAYS
     Route: 048
     Dates: start: 201702
  2. WARFARIN SODIUM. [Suspect]
     Active Substance: WARFARIN SODIUM
     Dosage: 8 MG FOR 3 DAYS AND 6 MG OTHER DAYS
     Route: 048
     Dates: end: 20170308

REACTIONS (3)
  - Product quality issue [Unknown]
  - International normalised ratio decreased [Recovered/Resolved]
  - Drug ineffective [Unknown]

NARRATIVE: CASE EVENT DATE: 20170207
